FAERS Safety Report 8544518-9 (Version None)
Quarter: 2012Q3

REPORT INFORMATION
  Report Type: 
  Country: None (occurrence: None)
  Receive Date: 20120727
  Receipt Date: 20120619
  Transmission Date: 20120928
  Serious: Yes (Hospitalization, Other)
  Sender: FDA-Public Use
  Company Number: US-009507513-1111USA02502

PATIENT

DRUGS (6)
  1. FOSAMAX [Suspect]
     Indication: OSTEOPENIA
     Dosage: 70 MG, QW
     Route: 048
     Dates: start: 19990101, end: 20080801
  2. PROVENTIL [Concomitant]
     Indication: ASTHMA
  3. FOSAMAX [Suspect]
     Dosage: 70 MG, UNK
     Route: 048
     Dates: start: 20080224, end: 20080817
  4. CORTICOSTEROIDS (UNSPECIFIED) [Concomitant]
     Indication: ASTHMA
     Dates: start: 19990101, end: 20040101
  5. FOSAMAX [Suspect]
     Dosage: 10 MG, QD
     Route: 048
     Dates: start: 19990301
  6. ADVAIR [Concomitant]
     Indication: ASTHMA
     Dosage: UNK UNK, PRN

REACTIONS (57)
  - ORAL SURGERY [None]
  - OSTEOPOROSIS [None]
  - METRORRHAGIA [None]
  - CHEST PAIN [None]
  - SWELLING [None]
  - GASTRITIS [None]
  - DEAFNESS [None]
  - GINGIVAL BLEEDING [None]
  - CARPAL TUNNEL SYNDROME [None]
  - CYST [None]
  - FALL [None]
  - TEMPERATURE INTOLERANCE [None]
  - EDENTULOUS [None]
  - FLATULENCE [None]
  - HEADACHE [None]
  - OPEN WOUND [None]
  - GENERALISED ANXIETY DISORDER [None]
  - PALPITATIONS [None]
  - PNEUMONIA [None]
  - SPONDYLOLISTHESIS [None]
  - DRY MOUTH [None]
  - ORAL PAIN [None]
  - PAIN IN JAW [None]
  - OSTEONECROSIS OF JAW [None]
  - FRACTURE [None]
  - ABSCESS [None]
  - PAIN IN EXTREMITY [None]
  - INFECTION [None]
  - OSTEOARTHRITIS [None]
  - DIPLOPIA [None]
  - DENTAL CARIES [None]
  - IMPAIRED HEALING [None]
  - EXOSTOSIS [None]
  - CELLULITIS [None]
  - SLEEP APNOEA SYNDROME [None]
  - ARTHRALGIA [None]
  - MENSTRUATION IRREGULAR [None]
  - ASPIRATION [None]
  - ROAD TRAFFIC ACCIDENT [None]
  - TOOTH FRACTURE [None]
  - TENDONITIS [None]
  - FOOT FRACTURE [None]
  - SMEAR CERVIX ABNORMAL [None]
  - HAEMORRHOIDS [None]
  - VISION BLURRED [None]
  - VOMITING [None]
  - FEMUR FRACTURE [None]
  - ANKLE FRACTURE [None]
  - TOOTH DISORDER [None]
  - TEMPOROMANDIBULAR JOINT SYNDROME [None]
  - HIATUS HERNIA [None]
  - ANKLE DEFORMITY [None]
  - ARTHROPOD BITE [None]
  - OVARIAN CYST [None]
  - LACERATION [None]
  - ABDOMINAL PAIN [None]
  - BONE PAIN [None]
